FAERS Safety Report 21356005 (Version 1)
Quarter: 2022Q3

REPORT INFORMATION
  Report Type: Spontaneous
  Country: RU (occurrence: None)
  Receive Date: 20220920
  Receipt Date: 20220920
  Transmission Date: 20221027
  Serious: Yes (Other)
  Sender: FDA-Public Use
  Company Number: 2022A320281

PATIENT
  Age: 48 Year
  Sex: Male
  Weight: 80 kg

DRUGS (1)
  1. SYMBICORT [Suspect]
     Active Substance: BUDESONIDE\FORMOTEROL FUMARATE DIHYDRATE
     Indication: Asthma
     Dosage: 160/4.5 MCG/INHALATION, ONE INHALATION TWICE PERDAY UNKNOWN
     Route: 055

REACTIONS (4)
  - Nasal polyps [Unknown]
  - Nasal congestion [Unknown]
  - Off label use [Unknown]
  - Intentional product misuse [Unknown]
